FAERS Safety Report 16811893 (Version 1)
Quarter: 2019Q3

REPORT INFORMATION
  Report Type: Spontaneous
  Country: DE (occurrence: DE)
  Receive Date: 20190916
  Receipt Date: 20190916
  Transmission Date: 20191005
  Serious: Yes (Other)
  Sender: FDA-Public Use
  Company Number: DE-ASTELLAS-2019US036211

PATIENT
  Age: 83 Year
  Sex: Female

DRUGS (4)
  1. L-THYROX [Concomitant]
     Active Substance: LEVOTHYROXINE SODIUM
     Indication: PRODUCT USED FOR UNKNOWN INDICATION
     Dosage: 25 UNK, AS NEEDED
     Route: 065
  2. BETMIGA [Suspect]
     Active Substance: MIRABEGRON
     Indication: MICTURITION URGENCY
     Dosage: 50 MG, ONCE DAILY (AFTER BREAKFAST)
     Route: 048
     Dates: start: 20190904, end: 20190909
  3. AMLODIPIN                          /00972401/ [Concomitant]
     Active Substance: AMLODIPINE BESYLATE
     Indication: PRODUCT USED FOR UNKNOWN INDICATION
     Route: 065
  4. ASPIRIN. [Concomitant]
     Active Substance: ASPIRIN
     Indication: PRODUCT USED FOR UNKNOWN INDICATION
     Route: 065

REACTIONS (7)
  - Abnormal dreams [Unknown]
  - Feeling abnormal [Unknown]
  - Nausea [Unknown]
  - Choking [Unknown]
  - Hypertension [Unknown]
  - Vomiting [Unknown]
  - Micturition urgency [Unknown]

NARRATIVE: CASE EVENT DATE: 20190909
